FAERS Safety Report 13843529 (Version 1)
Quarter: 2017Q3

REPORT INFORMATION
  Report Type: Spontaneous
  Country: US (occurrence: US)
  Receive Date: 20170808
  Receipt Date: 20170808
  Transmission Date: 20171127
  Serious: Yes (Hospitalization)
  Sender: FDA-Public Use
  Company Number: None

PATIENT
  Age: 53 Year
  Sex: Male

DRUGS (19)
  1. ENBREL [Suspect]
     Active Substance: ETANERCEPT
     Indication: PSORIATIC ARTHROPATHY
     Dosage: 50MG QWK SC
     Route: 058
  2. LOSARTAN POT [Concomitant]
     Active Substance: LOSARTAN POTASSIUM
  3. NYSTOP [Concomitant]
     Active Substance: NYSTATIN
  4. MELOXICAM. [Concomitant]
     Active Substance: MELOXICAM
  5. CIPRO [Concomitant]
     Active Substance: CIPROFLOXACIN HYDROCHLORIDE
  6. ELIQUIS [Concomitant]
     Active Substance: APIXABAN
  7. THEOPHYLLINE [Concomitant]
     Active Substance: THEOPHYLLINE ANHYDROUS
  8. COMBIVENT [Concomitant]
     Active Substance: ALBUTEROL SULFATE\IPRATROPIUM BROMIDE
  9. ENOXPARIN [Concomitant]
  10. STIOLTO RESPIMAT [Concomitant]
     Active Substance: OLODATEROL HYDROCHLORIDE\TIOTROPIUM BROMIDE MONOHYDRATE
  11. QVAR [Concomitant]
     Active Substance: BECLOMETHASONE DIPROPIONATE
  12. PREDNISONE. [Concomitant]
     Active Substance: PREDNISONE
  13. FLECAINIDE [Concomitant]
     Active Substance: FLECAINIDE
  14. OMEPRAZOLE. [Concomitant]
     Active Substance: OMEPRAZOLE
  15. HYDROCO/APAP [Concomitant]
     Active Substance: ACETAMINOPHEN\HYDROCODONE
  16. FUROSEMID [Concomitant]
     Active Substance: FUROSEMIDE
  17. ULORIC [Concomitant]
     Active Substance: FEBUXOSTAT
  18. PROAIR HFA [Concomitant]
     Active Substance: ALBUTEROL SULFATE
  19. POT CL MICRO [Concomitant]

REACTIONS (2)
  - Cellulitis [None]
  - Chronic obstructive pulmonary disease [None]
